FAERS Safety Report 10574713 (Version 1)
Quarter: 2014Q4

REPORT INFORMATION
  Report Type: Spontaneous
  Country: FR (occurrence: FR)
  Receive Date: 20141110
  Receipt Date: 20141110
  Transmission Date: 20150529
  Serious: Yes (Hospitalization, Other)
  Sender: FDA-Public Use
  Company Number: FR-PFIZER INC-2014304164

PATIENT
  Age: 82 Year
  Sex: Female

DRUGS (13)
  1. TRIATEC [Suspect]
     Active Substance: RAMIPRIL
     Dosage: 1 DF, DAILY
     Route: 048
     Dates: end: 20141010
  2. BREXIN [Interacting]
     Active Substance: CHLORPHENIRAMINE\PSEUDOEPHEDRINE
     Dosage: 20 MG, DAILY
     Route: 048
     Dates: start: 20141008, end: 20141010
  3. PREVISCAN [Concomitant]
     Active Substance: FLUINDIONE
     Dosage: UNK
  4. ROVAMYCIN [Concomitant]
     Active Substance: SPIRAMYCIN
     Indication: LUNG DISORDER
     Dosage: UNK
  5. SKENAN [Concomitant]
     Active Substance: MORPHINE SULFATE
     Dosage: UNK
     Dates: start: 20141008
  6. ROWASA [Suspect]
     Active Substance: MESALAMINE
     Indication: COLITIS
     Dosage: 1 DF, DAILY
     Route: 048
     Dates: end: 20141010
  7. GLUCOSE [Concomitant]
     Active Substance: DEXTROSE
     Dosage: UNK
  8. LASILIX [Suspect]
     Active Substance: FUROSEMIDE
     Indication: CARDIAC FAILURE
     Dosage: 1 DF, 3X/DAY
     Route: 048
     Dates: end: 20141010
  9. PARIET [Concomitant]
     Active Substance: RABEPRAZOLE SODIUM
     Dosage: UNK
  10. CARDENSIEL [Concomitant]
     Active Substance: BISOPROLOL FUMARATE
     Dosage: UNK
  11. NOREPINEPHRINE [Concomitant]
     Active Substance: NOREPINEPHRINE\NOREPINEPHRINE BITARTRATE
     Dosage: UNK
  12. CLAFORAN [Concomitant]
     Active Substance: CEFOTAXIME SODIUM
     Indication: LUNG DISORDER
     Dosage: UNK
  13. AMIODARONE [Concomitant]
     Active Substance: AMIODARONE
     Dosage: UNK

REACTIONS (6)
  - Hyperkalaemia [Recovered/Resolved]
  - Acute kidney injury [Recovered/Resolved]
  - Cardiac failure [Unknown]
  - Lung infection [Unknown]
  - Drug interaction [Recovered/Resolved]
  - Respiratory acidosis [Unknown]

NARRATIVE: CASE EVENT DATE: 201410
